FAERS Safety Report 6075552-9 (Version None)
Quarter: 2009Q1

REPORT INFORMATION
  Report Type: 
  Country: None (occurrence: None)
  Receive Date: 20090212
  Receipt Date: 20090204
  Transmission Date: 20090719
  Serious: Yes (Hospitalization)
  Sender: FDA-Public Use
  Company Number: IL-GILEAD-2009-0020174

PATIENT
  Sex: Male
  Weight: 80 kg

DRUGS (13)
  1. AMBRISENTAN [Suspect]
     Indication: PULMONARY ARTERIAL HYPERTENSION
     Dates: start: 20050314
  2. ILOPROST [Concomitant]
     Route: 055
  3. FUROSEMIDE [Concomitant]
     Indication: OEDEMA
     Route: 048
     Dates: start: 20080501
  4. CAPTOPRIL [Concomitant]
     Indication: HYPERTENSION
     Route: 048
     Dates: start: 20060213
  5. DILTIAZEM [Concomitant]
     Indication: HYPERTENSION
  6. DOXAZOSIN MESYLATE [Concomitant]
     Indication: BENIGN PROSTATIC HYPERPLASIA
     Route: 048
     Dates: start: 20080201
  7. SIMOVIL [Concomitant]
     Indication: DYSLIPIDAEMIA
     Dates: start: 20031203
  8. ASPIRIN [Concomitant]
     Indication: MYOCARDIAL ISCHAEMIA
     Route: 048
     Dates: start: 20040920
  9. OMEPRAZOLE [Concomitant]
     Indication: GASTRITIS
     Route: 048
     Dates: start: 20060901
  10. PREDNISONE [Concomitant]
     Indication: SCLERODERMA
     Route: 048
     Dates: start: 20070701
  11. ALENDRONATE SODIUM [Concomitant]
     Indication: OSTEOPOROSIS
     Route: 048
  12. CALCIUM [Concomitant]
     Indication: OSTEOPOROSIS
     Route: 048
     Dates: start: 20031025
  13. VITAMIN B-12 [Concomitant]
     Route: 048

REACTIONS (1)
  - RIGHT VENTRICULAR FAILURE [None]
